FAERS Safety Report 16782624 (Version 12)
Quarter: 2020Q1

REPORT INFORMATION
  Report Type: Report from Study
  Country: US (occurrence: US)
  Receive Date: 20190906
  Receipt Date: 20200210
  Transmission Date: 20200409
  Serious: Yes (Death, Hospitalization, Other)
  Sender: FDA-Public Use
  Company Number: US-ACTELION-A-NJ2018-176013

PATIENT
  Age: 55 Year
  Sex: Female
  Weight: 56.69 kg

DRUGS (12)
  1. VELETRI [Suspect]
     Active Substance: EPOPROSTENOL
     Indication: PULMONARY HYPERTENSION
     Dosage: 50 NG/KG, PER MIN
     Route: 042
  2. VELETRI [Suspect]
     Active Substance: EPOPROSTENOL
     Dosage: 50 NG/KG, PER MIN
     Route: 042
  3. ZAROXOLYN [Concomitant]
     Active Substance: METOLAZONE
     Dosage: 5 MG, QD
  4. ZOLOFT [Concomitant]
     Active Substance: SERTRALINE HYDROCHLORIDE
     Dosage: 50 MG, QD
  5. VELETRI [Suspect]
     Active Substance: EPOPROSTENOL
     Dosage: 48 NG/KG, PER MIN
     Route: 042
  6. SILDENAFIL CITRATE. [Concomitant]
     Active Substance: SILDENAFIL CITRATE
     Dosage: 20 MG, TID
  7. VELETRI [Suspect]
     Active Substance: EPOPROSTENOL
     Dosage: 27 NG/KG, PER MIN
     Route: 042
  8. K [Concomitant]
     Dosage: 40 MEQ, QD
  9. VELETRI [Suspect]
     Active Substance: EPOPROSTENOL
     Dosage: 17 NG/KG, PER MIN
     Route: 042
  10. DIGOXIN. [Concomitant]
     Active Substance: DIGOXIN
     Dosage: 125 MCG, QD
  11. ALBUTEROL. [Concomitant]
     Active Substance: ALBUTEROL
     Dosage: UNK, Q4HRS, PRN
  12. TRACLEER [Suspect]
     Active Substance: BOSENTAN
     Indication: PULMONARY HYPERTENSION
     Dosage: 125 MG, BID
     Route: 048
     Dates: start: 20141118

REACTIONS (23)
  - Cardiac failure congestive [Unknown]
  - Therapeutic product ineffective [Unknown]
  - Diarrhoea [Not Recovered/Not Resolved]
  - Dyspnoea exertional [Not Recovered/Not Resolved]
  - Death [Fatal]
  - Dyspnoea [Not Recovered/Not Resolved]
  - Hypoxia [Unknown]
  - Lung disorder [Unknown]
  - Pulmonary hypertension [Unknown]
  - Weight decreased [Unknown]
  - Device dislocation [Recovered/Resolved]
  - Fluid retention [Unknown]
  - Oxygen saturation decreased [Unknown]
  - Pain in jaw [Unknown]
  - Pyrexia [Unknown]
  - Catheter site pruritus [Unknown]
  - Disease progression [Unknown]
  - Condition aggravated [Unknown]
  - Transplant evaluation [Not Recovered/Not Resolved]
  - Headache [Unknown]
  - Dyspnoea at rest [Not Recovered/Not Resolved]
  - Catheter removal [Unknown]
  - Lung transplant [Unknown]

NARRATIVE: CASE EVENT DATE: 20200126
